FAERS Safety Report 16568570 (Version 2)
Quarter: 2019Q3

REPORT INFORMATION
  Report Type: Spontaneous
  Country: DE (occurrence: DE)
  Receive Date: 20190712
  Receipt Date: 20190917
  Transmission Date: 20191004
  Serious: Yes (Death, Life-Threatening, Other)
  Sender: FDA-Public Use
  Company Number: PHHY2019DE162314

PATIENT
  Age: 86 Year
  Sex: Female
  Weight: 59 kg

DRUGS (2)
  1. TASIGNA [Suspect]
     Active Substance: NILOTINIB
     Indication: CHRONIC MYELOID LEUKAEMIA
     Dosage: 400 MG, UNK
     Route: 048
     Dates: start: 201304, end: 201306
  2. TASIGNA [Suspect]
     Active Substance: NILOTINIB
     Dosage: 300 MG, UNK
     Route: 048
     Dates: start: 201306, end: 201706

REACTIONS (5)
  - Cerebrovascular accident [Fatal]
  - Sensory loss [Unknown]
  - Motor dysfunction [Unknown]
  - Ischaemic stroke [Unknown]
  - Speech disorder [Unknown]

NARRATIVE: CASE EVENT DATE: 20170302
